FAERS Safety Report 21973202 (Version 1)
Quarter: 2023Q1

REPORT INFORMATION
  Report Type: Report from Study
  Country: US (occurrence: US)
  Receive Date: 20230209
  Receipt Date: 20230209
  Transmission Date: 20230417
  Serious: Yes (Hospitalization, Other)
  Sender: FDA-Public Use
  Company Number: US-MYLANLABS-2018M1091003

PATIENT
  Age: 6 Year
  Sex: Female
  Weight: 20.7 kg

DRUGS (46)
  1. TOBI PODHALER [Suspect]
     Active Substance: TOBRAMYCIN
     Indication: Cystic fibrosis
     Dosage: UNK
     Route: 065
  2. TOBI [Suspect]
     Active Substance: TOBRAMYCIN
     Indication: Cystic fibrosis lung
     Dosage: UNK, BID (300 OT)
     Route: 055
     Dates: start: 20160426, end: 20160524
  3. TOBI [Suspect]
     Active Substance: TOBRAMYCIN
     Indication: Pseudomonas infection
     Dosage: UNK, BID (300 OT)
     Route: 055
     Dates: start: 20160623, end: 20160721
  4. TOBI [Suspect]
     Active Substance: TOBRAMYCIN
     Indication: Fungal infection
     Dosage: UNK, BID (300 OT)
     Route: 055
     Dates: start: 20160820, end: 20160910
  5. TOBI [Suspect]
     Active Substance: TOBRAMYCIN
     Dosage: UNK, BID (300 OT)
     Route: 055
     Dates: start: 20161003, end: 20161031
  6. TOBI [Suspect]
     Active Substance: TOBRAMYCIN
     Dosage: UNK, BID (300 OT)
     Route: 055
     Dates: start: 20161130, end: 20161228
  7. TOBI [Suspect]
     Active Substance: TOBRAMYCIN
     Dosage: UNK, BID (300 OT)
     Route: 055
     Dates: start: 20170321, end: 20170417
  8. TOBI [Suspect]
     Active Substance: TOBRAMYCIN
     Dosage: UNK, BID (300 OT)
     Route: 055
     Dates: start: 20170501, end: 20170529
  9. TOBI [Suspect]
     Active Substance: TOBRAMYCIN
     Dosage: UNK, BID (300 OT)
     Route: 055
     Dates: start: 20170701, end: 20170729
  10. TOBI [Suspect]
     Active Substance: TOBRAMYCIN
     Dosage: UNK, BID (300 OT)
     Route: 055
     Dates: start: 20170701, end: 20170729
  11. TOBI [Suspect]
     Active Substance: TOBRAMYCIN
     Indication: Cystic fibrosis
     Dosage: UNK
     Route: 065
     Dates: start: 20140616
  12. TOBI [Suspect]
     Active Substance: TOBRAMYCIN
     Dosage: UNK, BID (300 OT)
     Route: 065
     Dates: start: 20170901, end: 20170929
  13. TOBI [Suspect]
     Active Substance: TOBRAMYCIN
     Dosage: UNK, BID (300 OT)
     Route: 065
     Dates: start: 20171101, end: 20171120
  14. TOBI [Suspect]
     Active Substance: TOBRAMYCIN
     Dosage: UNK, BID (300 OT)
     Route: 065
     Dates: start: 20171218
  15. TOBRAMYCIN [Suspect]
     Active Substance: TOBRAMYCIN
     Indication: Product used for unknown indication
     Dosage: UNK, BID (300 OT)
     Route: 065
     Dates: start: 20170125, end: 20170222
  16. CAYSTON [Suspect]
     Active Substance: AZTREONAM
     Indication: Cystic fibrosis
     Dosage: UNK
     Route: 065
     Dates: start: 20170530
  17. CAYSTON [Suspect]
     Active Substance: AZTREONAM
     Dosage: UNK, TID (75 OT)
     Route: 065
     Dates: start: 20170601, end: 20170629
  18. CAYSTON [Suspect]
     Active Substance: AZTREONAM
     Dosage: UNK, TID (75 OT)
     Route: 065
     Dates: start: 20170801, end: 20170829
  19. CAYSTON [Suspect]
     Active Substance: AZTREONAM
     Dosage: UNK, TID (75 OT)
     Route: 065
     Dates: start: 20171001, end: 20171029
  20. CAYSTON [Suspect]
     Active Substance: AZTREONAM
     Dosage: UNK, TID (75 OT)
     Route: 065
     Dates: start: 20171120, end: 20171217
  21. CAYSTON [Suspect]
     Active Substance: AZTREONAM
     Dosage: UNK
     Route: 065
     Dates: start: 20180116, end: 20180213
  22. CAYSTON [Suspect]
     Active Substance: AZTREONAM
     Dosage: UNK
     Route: 065
     Dates: start: 20180116, end: 20180731
  23. ALBUTEROL [Concomitant]
     Active Substance: ALBUTEROL
     Indication: Bronchospasm
     Dosage: QID
     Route: 055
     Dates: start: 20160908, end: 20160909
  24. CEFTAZ [Concomitant]
     Indication: Fungal infection
     Dosage: UNK
     Route: 042
     Dates: start: 20160822, end: 20160905
  25. BACTRIM [Concomitant]
     Active Substance: SULFAMETHOXAZOLE\TRIMETHOPRIM
     Indication: Fungal infection
     Dosage: BID
     Route: 042
     Dates: start: 20160905, end: 20160909
  26. BACTRIM [Concomitant]
     Active Substance: SULFAMETHOXAZOLE\TRIMETHOPRIM
     Indication: Cystic fibrosis
     Dosage: 80MG-400MG
     Route: 065
     Dates: start: 20160909
  27. CLINDAMYCIN [Concomitant]
     Active Substance: CLINDAMYCIN
     Indication: Fungal infection
     Dosage: UNK
     Route: 042
     Dates: start: 20160902, end: 20160909
  28. ADVAIR HFA [Concomitant]
     Active Substance: FLUTICASONE PROPIONATE\SALMETEROL XINAFOATE
     Indication: Cystic fibrosis
     Dosage: UNK
     Route: 065
     Dates: start: 20160810
  29. AUGMENTIN [Concomitant]
     Active Substance: AMOXICILLIN\CLAVULANATE POTASSIUM
     Indication: Cystic fibrosis
     Dosage: UNK
     Route: 065
     Dates: start: 20160518, end: 20160528
  30. AUGMENTIN [Concomitant]
     Active Substance: AMOXICILLIN\CLAVULANATE POTASSIUM
     Dosage: UNK
     Route: 065
     Dates: start: 20171128, end: 20171212
  31. BACTROBAN [Concomitant]
     Active Substance: MUPIROCIN\MUPIROCIN CALCIUM
     Indication: Rhinitis allergic
     Dosage: UNK
     Route: 065
     Dates: start: 20160428
  32. SODIUM BICARBONATE [Concomitant]
     Active Substance: SODIUM BICARBONATE
     Indication: Cystic fibrosis
     Dosage: UNK
     Route: 065
     Dates: start: 20150602
  33. CLARITIN [Concomitant]
     Active Substance: LORATADINE
     Indication: Rhinitis allergic
     Dosage: UNK
     Route: 065
     Dates: start: 20160428
  34. CREON [Concomitant]
     Active Substance: PANCRELIPASE AMYLASE\PANCRELIPASE LIPASE\PANCRELIPASE PROTEASE
     Indication: Pancreatic failure
     Dosage: UNK
     Route: 065
     Dates: start: 20140616
  35. FLONASE [Concomitant]
     Active Substance: FLUTICASONE PROPIONATE
     Indication: Rhinitis allergic
     Dosage: UNK
     Route: 065
     Dates: start: 20160428
  36. FLOVENT [Concomitant]
     Active Substance: FLUTICASONE PROPIONATE
     Indication: Asthma
     Dosage: UNK
     Route: 065
     Dates: start: 20160428
  37. LEVAQUIN [Concomitant]
     Active Substance: LEVOFLOXACIN
     Indication: Infective pulmonary exacerbation of cystic fibrosis
     Dosage: UNK
     Route: 065
     Dates: start: 20170320, end: 20170403
  38. MIRALAX [Concomitant]
     Active Substance: POLYETHYLENE GLYCOL 3350
     Indication: Cystic fibrosis
     Dosage: UNK
     Route: 065
     Dates: start: 20160802
  39. NASONEX [Concomitant]
     Active Substance: MOMETASONE FUROATE
     Indication: Cystic fibrosis
     Dosage: UNK
     Route: 065
     Dates: start: 20150602
  40. PERIACTIN [Concomitant]
     Active Substance: CYPROHEPTADINE HYDROCHLORIDE
     Indication: Cystic fibrosis
     Dosage: UNK
     Route: 065
     Dates: start: 20160909
  41. PREDNISONE [Concomitant]
     Active Substance: PREDNISONE
     Indication: Infective pulmonary exacerbation of cystic fibrosis
     Dosage: UNK
     Route: 065
     Dates: start: 20160614, end: 20160628
  42. PREVACID [Concomitant]
     Active Substance: LANSOPRAZOLE
     Indication: Cystic fibrosis
     Dosage: UNK
     Route: 065
     Dates: start: 20150813
  43. PULMOZYME [Concomitant]
     Active Substance: DORNASE ALFA
     Indication: Cystic fibrosis
     Dosage: UNK
     Route: 065
     Dates: start: 20140905
  44. SINGULAIR [Concomitant]
     Active Substance: MONTELUKAST SODIUM
     Indication: Rhinitis allergic
     Dosage: UNK
     Route: 065
     Dates: start: 20160428
  45. VENTOLIN [Concomitant]
     Active Substance: ALBUTEROL SULFATE
     Indication: Cystic fibrosis
     Dosage: UNK
     Route: 065
     Dates: start: 20150625
  46. VFEND [Concomitant]
     Active Substance: VORICONAZOLE
     Indication: Cystic fibrosis
     Dosage: UNK
     Route: 065
     Dates: start: 20160909

REACTIONS (4)
  - Infective pulmonary exacerbation of cystic fibrosis [Recovered/Resolved]
  - Pyrexia [Recovered/Resolved]
  - Bronchiectasis [Unknown]
  - Asthma [Recovered/Resolved]

NARRATIVE: CASE EVENT DATE: 20160518
